FAERS Safety Report 9583394 (Version 1)
Quarter: 2013Q4

REPORT INFORMATION
  Report Type: Spontaneous
  Country: US (occurrence: US)
  Receive Date: 20131002
  Receipt Date: 20131002
  Transmission Date: 20140711
  Serious: No
  Sender: FDA-Public Use
  Company Number: US-AMGEN-USASP2013046529

PATIENT
  Age: 16 Year
  Sex: Female
  Weight: 73 kg

DRUGS (5)
  1. ENBREL [Suspect]
     Indication: PRODUCT USED FOR UNKNOWN INDICATION
     Dosage: 25 MG, 2 TIMES/WK
     Route: 058
  2. METHOTREXATE [Concomitant]
     Dosage: 100/4 ML NK
  3. ALLEGRA [Concomitant]
     Dosage: 60 MG, UNK
  4. IBUPROFEN [Concomitant]
     Dosage: 200 MG, UNK
  5. FOLIC ACID [Concomitant]
     Dosage: 20 MG, UNK

REACTIONS (1)
  - Diarrhoea [Unknown]
